FAERS Safety Report 18172480 (Version 2)
Quarter: 2021Q4

REPORT INFORMATION
  Report Type: Spontaneous
  Country: US (occurrence: US)
  Receive Date: 20200820
  Receipt Date: 20211112
  Transmission Date: 20220303
  Serious: No
  Sender: FDA-Public Use
  Company Number: US-NOVARTISTESTPH-NVSC2020US227945

PATIENT
  Sex: Female

DRUGS (5)
  1. ILARIS [Suspect]
     Active Substance: CANAKINUMAB
     Indication: Cryopyrin associated periodic syndrome
     Dosage: UNK
     Route: 065
  2. ILARIS [Suspect]
     Active Substance: CANAKINUMAB
     Dosage: 150 MG/ML, EVERY 8 WEEK
     Route: 058
  3. AZELASTINE [Concomitant]
     Active Substance: AZELASTINE
     Indication: Product used for unknown indication
     Dosage: 137 MG, BID
     Route: 006
  4. CHATEAL [Concomitant]
     Active Substance: ETHINYL ESTRADIOL\LEVONORGESTREL
     Indication: Product used for unknown indication
     Dosage: 0.15-0.30 MG, QD
     Route: 048
  5. LEVOCETIRIZINE [Concomitant]
     Active Substance: LEVOCETIRIZINE
     Indication: Product used for unknown indication
     Route: 065

REACTIONS (19)
  - Contusion [Recovering/Resolving]
  - Heavy menstrual bleeding [Recovering/Resolving]
  - Injection site haemorrhage [Recovering/Resolving]
  - Platelet count decreased [Recovering/Resolving]
  - Alanine aminotransferase [Unknown]
  - Aspartate aminotransferase [Unknown]
  - Blood cholesterol [Unknown]
  - Low density lipoprotein increased [Unknown]
  - Blood triglycerides [Unknown]
  - High density lipoprotein increased [Unknown]
  - Eosinophil count [Unknown]
  - Mean platelet volume abnormal [Unknown]
  - Red blood cell count abnormal [Unknown]
  - Haemoglobin [Unknown]
  - Haematocrit [Unknown]
  - Red blood cell sedimentation rate increased [Unknown]
  - C-reactive protein [Unknown]
  - Blood immunoglobulin G [Unknown]
  - Crystal urine [Unknown]
